FAERS Safety Report 7887696-7 (Version None)
Quarter: 2011Q4

REPORT INFORMATION
  Report Type: 
  Country: None (occurrence: None)
  Receive Date: 20111103
  Receipt Date: 20111026
  Transmission Date: 20120403
  Serious: No
  Sender: FDA-Public Use
  Company Number: US-BIOGENIDEC-2011BI040850

PATIENT
  Sex: Female

DRUGS (1)
  1. AVONEX [Suspect]
     Indication: MULTIPLE SCLEROSIS
     Route: 030
     Dates: start: 20050114

REACTIONS (5)
  - DEPRESSION [None]
  - BALANCE DISORDER [None]
  - MEMORY IMPAIRMENT [None]
  - FATIGUE [None]
  - NEUROPATHY PERIPHERAL [None]
